FAERS Safety Report 4643086-1 (Version None)
Quarter: 2005Q2

REPORT INFORMATION
  Report Type: 
  Country: None (occurrence: None)
  Receive Date: 20050421
  Receipt Date: 20041025
  Transmission Date: 20051028
  Serious: Yes (Death)
  Sender: FDA-Public Use
  Company Number: USA-2004-0017045

PATIENT
  Age: 16 Year
  Sex: Male

DRUGS (1)
  1. OXYCONTIN [Suspect]
     Dosage: UNK, MG

REACTIONS (4)
  - AORTIC DISSECTION [None]
  - BICUSPID AORTIC VALVE [None]
  - CARDIAC TAMPONADE [None]
  - CONVULSION [None]
